FAERS Safety Report 24894431 (Version 1)
Quarter: 2025Q1

REPORT INFORMATION
  Report Type: Spontaneous
  Country: US (occurrence: None)
  Receive Date: 20250128
  Receipt Date: 20250128
  Transmission Date: 20250409
  Serious: Yes (Hospitalization)
  Sender: FDA-CTU
  Company Number: None

PATIENT
  Sex: Female

DRUGS (8)
  1. TADALAFIL [Suspect]
     Active Substance: TADALAFIL
     Indication: Pulmonary arterial hypertension
     Dosage: FREQUENCY : DAILY;?
     Route: 048
     Dates: start: 202206
  2. WINREVAIR [Concomitant]
     Active Substance: SOTATERCEPT-CSRK
  3. TADILAFIL [Concomitant]
  4. OPSUMIT [Concomitant]
     Active Substance: MACITENTAN
  5. VELETRI SDV [Concomitant]
  6. OPSUMIT [Concomitant]
     Active Substance: MACITENTAN
  7. WINREVAIR [Concomitant]
     Active Substance: SOTATERCEPT-CSRK
  8. WINREVAIR [Suspect]
     Active Substance: SOTATERCEPT-CSRK

REACTIONS (1)
  - Pulmonary hypertension [None]
